FAERS Safety Report 17669860 (Version 7)
Quarter: 2023Q1

REPORT INFORMATION
  Report Type: Spontaneous
  Country: DE (occurrence: DE)
  Receive Date: 20200415
  Receipt Date: 20230131
  Transmission Date: 20230417
  Serious: Yes (Other)
  Sender: FDA-Public Use
  Company Number: DE-002147023-NVSC2020DE090459

PATIENT
  Sex: Male
  Weight: 127 kg

DRUGS (11)
  1. PANTOPRAZOLE [Suspect]
     Active Substance: PANTOPRAZOLE
     Dosage: 20 MILLIGRAM, QD
     Route: 065
     Dates: start: 20170328
  2. METFORMIN HYDROCHLORIDE [Suspect]
     Active Substance: METFORMIN HYDROCHLORIDE
     Dosage: 2000 MILLIGRAM, QD
     Route: 065
     Dates: start: 20100330
  3. AMLODIPINE BESYLATE [Suspect]
     Active Substance: AMLODIPINE BESYLATE
     Dosage: 10 MILLIGRAM, QD
     Route: 065
     Dates: start: 20170328
  4. EPLERENONE [Suspect]
     Active Substance: EPLERENONE
     Dosage: 25 MILLIGRAM, QD
     Route: 065
     Dates: start: 20200113
  5. ASPIRIN [Suspect]
     Active Substance: ASPIRIN
     Dosage: UNK UNK, QD
     Route: 065
     Dates: start: 20170301
  6. ROXITHROMYCIN [Suspect]
     Active Substance: ROXITHROMYCIN
     Dosage: UNK UNK, QD
     Route: 065
     Dates: start: 20200320, end: 20200326
  7. METOPROLOL [Suspect]
     Active Substance: METOPROLOL
     Dosage: UNK UNK, BID
     Route: 065
     Dates: start: 20170328
  8. ROSUVASTATIN [Suspect]
     Active Substance: ROSUVASTATIN
     Dosage: 10 MILLIGRAM, QD
     Route: 065
     Dates: start: 20190328
  9. INSULIN ASPART [Suspect]
     Active Substance: INSULIN ASPART
     Dosage: UNK
     Route: 065
     Dates: start: 20160328
  10. TOUJEO [Suspect]
     Active Substance: INSULIN GLARGINE
     Dosage: UNK UNK, QD
     Route: 065
     Dates: start: 20190606
  11. HYDROCHLOROTHIAZIDE\VALSARTAN [Suspect]
     Active Substance: HYDROCHLOROTHIAZIDE\VALSARTAN
     Dosage: 1 DOSAGE FORM, QD
     Route: 065
     Dates: start: 20100330

REACTIONS (9)
  - Arrhythmia [Unknown]
  - Cardiovascular disorder [Unknown]
  - Influenza [Unknown]
  - Nausea [Unknown]
  - Hypotonia [Unknown]
  - Palpitations [Unknown]
  - Diarrhoea [Unknown]
  - Arthralgia [Unknown]
  - Abdominal pain upper [Unknown]

NARRATIVE: CASE EVENT DATE: 20200321
